FAERS Safety Report 9295065 (Version 1)
Quarter: 2013Q2

REPORT INFORMATION
  Report Type: Spontaneous
  Country: US (occurrence: None)
  Receive Date: 20130516
  Receipt Date: 20130516
  Transmission Date: 20140414
  Serious: Yes (Other)
  Sender: FDA-Public Use
  Company Number: None

PATIENT
  Age: 60 Year
  Sex: Female
  Weight: 57.61 kg

DRUGS (2)
  1. ZOFRAN [Suspect]
     Route: 042
     Dates: start: 20130327, end: 20130327
  2. ONDANSETRON [Suspect]
     Route: 048
     Dates: start: 20130328, end: 20130328

REACTIONS (9)
  - Bronchospasm [None]
  - Gastroenteritis viral [None]
  - Arthralgia [None]
  - Arthralgia [None]
  - Dysstasia [None]
  - Movement disorder [None]
  - Discomfort [None]
  - Reaction to drug excipients [None]
  - Joint range of motion decreased [None]
